FAERS Safety Report 18495444 (Version 1)
Quarter: 2020Q4

REPORT INFORMATION
  Report Type: Spontaneous
  Country: US (occurrence: US)
  Receive Date: 20201112
  Receipt Date: 20201112
  Transmission Date: 20210114
  Serious: Yes (Death)
  Sender: FDA-Public Use
  Company Number: None

PATIENT
  Age: 89 Year
  Sex: Male

DRUGS (1)
  1. ESBRIET [Suspect]
     Active Substance: PIRFENIDONE
     Indication: ACUTE INTERSTITIAL PNEUMONITIS
     Route: 048
     Dates: start: 20191210

REACTIONS (9)
  - Hypoxia [None]
  - Atrial fibrillation [None]
  - Acute respiratory failure [None]
  - Adverse event [None]
  - Hypotension [None]
  - Pneumonia [None]
  - Asthenia [None]
  - Orthostatic hypotension [None]
  - Dysphagia [None]

NARRATIVE: CASE EVENT DATE: 20201012
